FAERS Safety Report 9819315 (Version 1)
Quarter: 2014Q1

REPORT INFORMATION
  Report Type: Spontaneous
  Country: US (occurrence: US)
  Receive Date: 20140115
  Receipt Date: 20140115
  Transmission Date: 20141002
  Serious: No
  Sender: FDA-Public Use
  Company Number: US-TEVA-455958USA

PATIENT
  Age: 78 Year
  Sex: Male
  Weight: 56.75 kg

DRUGS (7)
  1. PROAIR HFA [Suspect]
     Indication: DYSPNOEA
     Dosage: 2 PUFFS
  2. GABAPENTIN [Suspect]
  3. ATENOLOL [Concomitant]
     Indication: HYPERTENSION
  4. STOOL SOFTENER [Concomitant]
  5. LAXATIVE [Concomitant]
  6. BABY ASPIRIN [Concomitant]
     Indication: PAIN
  7. TYLENOL [Concomitant]
     Indication: PAIN

REACTIONS (1)
  - Dry mouth [Unknown]
